FAERS Safety Report 25132505 (Version 1)
Quarter: 2025Q1

REPORT INFORMATION
  Report Type: Spontaneous
  Country: US (occurrence: US)
  Receive Date: 20250328
  Receipt Date: 20250328
  Transmission Date: 20250409
  Serious: No
  Sender: ALEXION PHARMACEUTICALS
  Company Number: US-AstraZeneca-CH-00834590A

PATIENT

DRUGS (2)
  1. FASLODEX [Suspect]
     Active Substance: FULVESTRANT
     Route: 065
  2. FASLODEX [Suspect]
     Active Substance: FULVESTRANT

REACTIONS (10)
  - Pain [Unknown]
  - Arthralgia [Unknown]
  - Hip arthroplasty [Unknown]
  - Injection site mass [Unknown]
  - Lipohypertrophy [Unknown]
  - Skin mass [Unknown]
  - Incorrect dose administered [Unknown]
  - Weight increased [Unknown]
  - Musculoskeletal stiffness [Unknown]
  - Gait disturbance [Unknown]
